FAERS Safety Report 6815141-9 (Version None)
Quarter: 2010Q3

REPORT INFORMATION
  Report Type: 
  Country: None (occurrence: None)
  Receive Date: 20100702
  Receipt Date: 20100625
  Transmission Date: 20110219
  Serious: Yes (Congenital Anomaly)
  Sender: FDA-Public Use
  Company Number: PHHO2010TR08686

PATIENT
  Sex: Female
  Weight: 77 kg

DRUGS (2)
  1. CGP 57148B T35717+ [Suspect]
     Indication: GASTROINTESTINAL STROMAL TUMOUR
     Dosage: 400MG DAILY
     Route: 048
     Dates: start: 20090722, end: 20100531
  2. CGP 57148B T35717+ [Suspect]
     Dosage: UNK
     Route: 048
     Dates: start: 20100610

REACTIONS (4)
  - ABDOMINAL PAIN [None]
  - ABORTION INDUCED [None]
  - DRUG EXPOSURE DURING PREGNANCY [None]
  - INTRA-UTERINE DEATH [None]
